FAERS Safety Report 22355961 (Version 3)
Quarter: 2023Q2

REPORT INFORMATION
  Report Type: Spontaneous
  Country: US (occurrence: US)
  Receive Date: 20230523
  Receipt Date: 20230621
  Transmission Date: 20230722
  Serious: No
  Sender: FDA-Public Use
  Company Number: US-PFIZER INC-PV202300088771

PATIENT
  Age: 73 Year
  Sex: Female

DRUGS (1)
  1. XELJANZ XR [Suspect]
     Active Substance: TOFACITINIB CITRATE
     Indication: Rheumatoid arthritis
     Dosage: 11 MG, 1X/DAY
     Route: 048
     Dates: start: 20230516

REACTIONS (8)
  - Peripheral swelling [Unknown]
  - Pain in extremity [Unknown]
  - Fatigue [Unknown]
  - Somnolence [Unknown]
  - Illness [Unknown]
  - Discouragement [Unknown]
  - Depressed mood [Unknown]
  - Product dose omission issue [Unknown]
